FAERS Safety Report 4626427-0 (Version None)
Quarter: 2005Q2

REPORT INFORMATION
  Report Type: 
  Country: None (occurrence: None)
  Receive Date: 20050404
  Receipt Date: 20050328
  Transmission Date: 20051028
  Serious: Yes (Other)
  Sender: FDA-Public Use
  Company Number: PHEH2005US03704

PATIENT
  Sex: Male

DRUGS (1)
  1. ELIDEL [Suspect]
     Route: 061
     Dates: start: 20030101

REACTIONS (1)
  - SKIN CANCER [None]
